FAERS Safety Report 4400011-6 (Version None)
Quarter: 2004Q3

REPORT INFORMATION
  Report Type: 
  Country: None (occurrence: None)
  Receive Date: 20040714
  Receipt Date: 20040701
  Transmission Date: 20050211
  Serious: Yes (Hospitalization)
  Sender: FDA-Public Use
  Company Number: 2004PK01155

PATIENT
  Age: 83 Year
  Sex: Female
  Weight: 70 kg

DRUGS (7)
  1. METOPROLOL TARTRATE [Suspect]
     Indication: HYPERTENSION
     Dosage: 47.5 MG QD PO
     Route: 048
     Dates: start: 19960101, end: 20040309
  2. DIGITOXIN TAB [Suspect]
     Indication: CARDIAC FAILURE
     Dosage: 0.05 MG DAILY PO
     Route: 048
     Dates: start: 20000101, end: 20040309
  3. TRINITON [Suspect]
     Indication: HYPERTENSION
     Dosage: 1 DF DAILY PO
     Route: 048
     Dates: start: 20030301, end: 20040309
  4. FOSINOPRIL SODIUM [Concomitant]
  5. PENTALONG [Concomitant]
  6. RADEDORM [Concomitant]
  7. TEGRETOL-XR [Concomitant]

REACTIONS (5)
  - BRADYCARDIA [None]
  - DRUG INTERACTION [None]
  - FALL [None]
  - OVERDOSE [None]
  - VERTIGO [None]
